FAERS Safety Report 6009980-4 (Version None)
Quarter: 2008Q4

REPORT INFORMATION
  Report Type: 
  Country: None (occurrence: None)
  Receive Date: 20081218
  Receipt Date: 20081210
  Transmission Date: 20090506
  Serious: Yes (Other)
  Sender: FDA-Public Use
  Company Number: JP-SP-2008-04020

PATIENT
  Age: 65 Year
  Sex: Male

DRUGS (2)
  1. IMMUCYST [Suspect]
     Indication: BLADDER CANCER
     Route: 043
     Dates: end: 20081103
  2. IMMUCYST [Suspect]
     Route: 043
     Dates: end: 20081103

REACTIONS (3)
  - ARTHRALGIA [None]
  - DIARRHOEA [None]
  - REITER'S SYNDROME [None]
